FAERS Safety Report 11803399 (Version 1)
Quarter: 2015Q4

REPORT INFORMATION
  Report Type: Spontaneous
  Country: CA (occurrence: CA)
  Receive Date: 20151204
  Receipt Date: 20151204
  Transmission Date: 20160305
  Serious: Yes (Hospitalization, Other)
  Sender: FDA-Public Use
  Company Number: CA-PFIZER INC-2015320544

PATIENT
  Age: 63 Year
  Sex: Female

DRUGS (1)
  1. RAPAMUNE [Suspect]
     Active Substance: SIROLIMUS
     Indication: ANTIPHOSPHOLIPID SYNDROME
     Dosage: 2 MG, DAILY

REACTIONS (5)
  - Cardiac failure [Not Recovered/Not Resolved]
  - Product use issue [Unknown]
  - Renal impairment [Not Recovered/Not Resolved]
  - Haemorrhage intracranial [Not Recovered/Not Resolved]
  - Condition aggravated [Not Recovered/Not Resolved]
